FAERS Safety Report 10924438 (Version 2)
Quarter: 2015Q2

REPORT INFORMATION
  Report Type: Spontaneous
  Country: US (occurrence: US)
  Receive Date: 20150318
  Receipt Date: 20150524
  Transmission Date: 20150821
  Serious: No
  Sender: FDA-Public Use
  Company Number: US-JNJFOC-20150114393

PATIENT
  Sex: Female
  Weight: 63.5 kg

DRUGS (21)
  1. KETOCONAZOLE 2%, SHAMPOO [Suspect]
     Active Substance: KETOCONAZOLE
     Indication: ALOPECIA
     Route: 061
     Dates: start: 2013, end: 2013
  2. TEMOVATE [Suspect]
     Active Substance: CLOBETASOL PROPIONATE
     Indication: ALOPECIA
     Route: 061
     Dates: start: 2013, end: 2013
  3. KETOCONAZOLE 2%, SHAMPOO [Suspect]
     Active Substance: KETOCONAZOLE
     Indication: PRURITUS
     Route: 061
     Dates: start: 2014, end: 201501
  4. TEMOVATE [Suspect]
     Active Substance: CLOBETASOL PROPIONATE
     Indication: ALOPECIA
     Route: 061
     Dates: start: 2014
  5. TEMOVATE [Suspect]
     Active Substance: CLOBETASOL PROPIONATE
     Indication: PRURITUS
     Route: 061
     Dates: start: 2013, end: 2013
  6. TEMOVATE [Suspect]
     Active Substance: CLOBETASOL PROPIONATE
     Indication: RASH
     Route: 061
     Dates: start: 2014
  7. BENAZEPRIL [Concomitant]
     Active Substance: BENAZEPRIL\BENAZEPRIL HYDROCHLORIDE
     Indication: HYPERTENSION
     Route: 048
  8. KETOCONAZOLE 2%, SHAMPOO [Suspect]
     Active Substance: KETOCONAZOLE
     Indication: ALOPECIA
     Route: 061
     Dates: start: 2014, end: 201501
  9. KETOCONAZOLE 2%, SHAMPOO [Suspect]
     Active Substance: KETOCONAZOLE
     Indication: RASH
     Route: 061
     Dates: start: 2013, end: 2013
  10. KETOCONAZOLE 2%, SHAMPOO [Suspect]
     Active Substance: KETOCONAZOLE
     Indication: RASH
     Route: 061
     Dates: start: 2014, end: 201501
  11. METFORMIN [Concomitant]
     Active Substance: METFORMIN HYDROCHLORIDE
     Indication: DIABETES MELLITUS
     Dosage: ONE TABLET IN MORNING AND ONE AT NIGHT
     Route: 048
  12. KETOCONAZOLE 2%, SHAMPOO [Suspect]
     Active Substance: KETOCONAZOLE
     Indication: SKIN IRRITATION
     Route: 061
     Dates: start: 2014, end: 201501
  13. KETOCONAZOLE 2%, SHAMPOO [Suspect]
     Active Substance: KETOCONAZOLE
     Indication: SKIN IRRITATION
     Route: 061
     Dates: start: 2013, end: 2013
  14. TEMOVATE [Suspect]
     Active Substance: CLOBETASOL PROPIONATE
     Indication: PRURITUS
     Route: 061
     Dates: start: 2014
  15. TEMOVATE [Suspect]
     Active Substance: CLOBETASOL PROPIONATE
     Indication: SKIN IRRITATION
     Route: 061
     Dates: start: 2014
  16. TEMOVATE [Suspect]
     Active Substance: CLOBETASOL PROPIONATE
     Indication: RASH
     Route: 061
     Dates: start: 2013, end: 2013
  17. KETOCONAZOLE 2%, SHAMPOO [Suspect]
     Active Substance: KETOCONAZOLE
     Indication: PRURITUS
     Route: 061
     Dates: start: 2013, end: 2013
  18. TEMOVATE [Suspect]
     Active Substance: CLOBETASOL PROPIONATE
     Indication: SKIN IRRITATION
     Route: 061
     Dates: start: 2013, end: 2013
  19. SYNTHROID [Concomitant]
     Active Substance: LEVOTHYROXINE SODIUM
     Indication: THYROID DISORDER
     Dosage: 0.112 ONCE EVERY MORNING
     Route: 048
  20. PANTOPRAZOLE [Concomitant]
     Active Substance: PANTOPRAZOLE SODIUM
     Indication: GASTROOESOPHAGEAL REFLUX DISEASE
     Route: 048
  21. LUMIGAN [Concomitant]
     Active Substance: BIMATOPROST
     Indication: GLAUCOMA
     Dosage: 0.01% ONE DROP BOTH EYES EVERY NIGHT
     Route: 047

REACTIONS (5)
  - Pruritus [Not Recovered/Not Resolved]
  - Rash [Not Recovered/Not Resolved]
  - Alopecia [Not Recovered/Not Resolved]
  - Hypertension [Not Recovered/Not Resolved]
  - Tinea infection [Not Recovered/Not Resolved]

NARRATIVE: CASE EVENT DATE: 2014
